FAERS Safety Report 24150848 (Version 1)
Quarter: 2024Q3

REPORT INFORMATION
  Report Type: Spontaneous
  Country: US (occurrence: None)
  Receive Date: 20240730
  Receipt Date: 20240730
  Transmission Date: 20241017
  Serious: No
  Sender: ASTRAZENECA
  Company Number: 2024A168212

PATIENT
  Sex: Male

DRUGS (1)
  1. BREZTRI [Suspect]
     Active Substance: BUDESONIDE\FORMOTEROL\GLYCOPYRROLATE
     Dosage: 160UG/9UG/4.8UG, TWO PUFFS, TWO TIMES A DAY
     Route: 055
     Dates: start: 2024

REACTIONS (8)
  - Visual impairment [Unknown]
  - Dyspnoea [Unknown]
  - Feeling abnormal [Unknown]
  - Thinking abnormal [Unknown]
  - Drug dose omission by device [Unknown]
  - Wrong technique in device usage process [Unknown]
  - Device use issue [Unknown]
  - Incorrect dose administered by device [Unknown]
